FAERS Safety Report 7060750-8 (Version None)
Quarter: 2010Q4

REPORT INFORMATION
  Report Type: 
  Country: None (occurrence: None)
  Receive Date: 20101025
  Receipt Date: 20101018
  Transmission Date: 20110411
  Serious: Yes (Other)
  Sender: FDA-Public Use
  Company Number: CA-BAXTER-2010BH026200

PATIENT
  Age: 4 Year
  Sex: Male

DRUGS (6)
  1. FLUCONAZOLE [Suspect]
     Indication: ANTIFUNGAL PROPHYLAXIS
     Route: 065
  2. ALL-TRANS-RETINOIC ACID [Interacting]
     Indication: ACUTE PROMYELOCYTIC LEUKAEMIA
     Route: 065
  3. CYTARABINE [Concomitant]
     Indication: ACUTE PROMYELOCYTIC LEUKAEMIA
     Route: 065
  4. DAUNORUBICIN HCL [Concomitant]
     Indication: ACUTE PROMYELOCYTIC LEUKAEMIA
     Route: 065
  5. MEROPENEM [Concomitant]
     Indication: FEBRILE NEUTROPENIA
     Route: 065
  6. AMPHOTERICIN B [Concomitant]
     Indication: FEBRILE NEUTROPENIA
     Route: 065

REACTIONS (1)
  - DRUG INTERACTION [None]
